FAERS Safety Report 8599126-0 (Version None)
Quarter: 2012Q3

REPORT INFORMATION
  Report Type: 
  Country: None (occurrence: None)
  Receive Date: 20120816
  Receipt Date: 20120806
  Transmission Date: 20120928
  Serious: No
  Sender: FDA-Public Use
  Company Number: US-ASTRAZENECA-2012SE55379

PATIENT
  Age: 65 Year
  Sex: Female
  Weight: 89.4 kg

DRUGS (4)
  1. SYNTHROID [Concomitant]
     Indication: THYROID DISORDER
  2. NEXIUM [Suspect]
     Indication: GASTROOESOPHAGEAL REFLUX DISEASE
     Route: 048
  3. PRILOSEC [Suspect]
     Indication: GASTROOESOPHAGEAL REFLUX DISEASE
     Route: 048
  4. CELEXA [Concomitant]
     Indication: DEPRESSION

REACTIONS (4)
  - DEPRESSION [None]
  - THYROID DISORDER [None]
  - DRUG INEFFECTIVE [None]
  - BARRETT'S OESOPHAGUS [None]
